FAERS Safety Report 6539653-0 (Version None)
Quarter: 2010Q1

REPORT INFORMATION
  Report Type: 
  Country: None (occurrence: None)
  Receive Date: 20100112
  Receipt Date: 20091230
  Transmission Date: 20100710
  Serious: Yes (Death)
  Sender: FDA-Public Use
  Company Number: ALK_01065_2009

PATIENT
  Sex: Male
  Weight: 72.5755 kg

DRUGS (3)
  1. VIVITROL [Suspect]
     Indication: DRUG USE FOR UNKNOWN INDICATION
     Dosage: 380  MG 1X/MONTH INTRAMUSCULAR
     Route: 030
     Dates: start: 20090225, end: 20091008
  2. NEURONTIN [Concomitant]
  3. SEROQUEL [Concomitant]

REACTIONS (3)
  - ALCOHOL USE [None]
  - MULTIPLE DRUG OVERDOSE [None]
  - SUBSTANCE ABUSE [None]
